FAERS Safety Report 7564016-9 (Version None)
Quarter: 2011Q2

REPORT INFORMATION
  Report Type: 
  Country: None (occurrence: None)
  Receive Date: 20110622
  Receipt Date: 20110616
  Transmission Date: 20111010
  Serious: Yes (Hospitalization)
  Sender: FDA-Public Use
  Company Number: GB-TEVA-286833ISR

PATIENT
  Age: 67 Week
  Sex: Female

DRUGS (7)
  1. DIGOXIN [Suspect]
  2. FUROSEMIDE [Suspect]
  3. SENNA [Suspect]
  4. DOCUSATE [Suspect]
  5. AMLODIPINE [Suspect]
  6. CLOZAPINE [Suspect]
     Indication: SCHIZOPHRENIA
     Dates: start: 20030420
  7. CLOZAPINE [Suspect]
     Dosage: 350 MILLIGRAM;
     Dates: start: 19990531

REACTIONS (2)
  - DRUG LEVEL INCREASED [None]
  - OVERDOSE [None]
